FAERS Safety Report 6367918-4 (Version None)
Quarter: 2009Q3

REPORT INFORMATION
  Report Type: 
  Country: None (occurrence: None)
  Receive Date: 20090922
  Receipt Date: 20081107
  Transmission Date: 20100115
  Serious: No
  Sender: FDA-Public Use
  Company Number: A0744449A

PATIENT
  Sex: Male

DRUGS (3)
  1. SEREVENT [Suspect]
     Indication: CHRONIC OBSTRUCTIVE PULMONARY DISEASE
     Dosage: 1PUFF TWICE PER DAY
     Route: 055
  2. ACCOLATE [Concomitant]
  3. MULTIPLE MEDICATIONS [Concomitant]

REACTIONS (3)
  - DYSPNOEA [None]
  - EMOTIONAL DISTRESS [None]
  - PRODUCT QUALITY ISSUE [None]
